FAERS Safety Report 5443110-2 (Version None)
Quarter: 2007Q3

REPORT INFORMATION
  Report Type: 
  Country: None (occurrence: None)
  Receive Date: 20070905
  Receipt Date: 20070813
  Transmission Date: 20080115
  Serious: Yes (Death, Hospitalization, Disabling)
  Sender: FDA-Public Use
  Company Number: ES-NOVOPROD-264034

PATIENT
  Sex: Male
  Weight: 95 kg

DRUGS (10)
  1. NOVOSEVEN [Suspect]
     Indication: TRAUMATIC HAEMORRHAGE
     Dosage: 3 DOSES
     Route: 042
     Dates: start: 20070522, end: 20070522
  2. MORFINE [Concomitant]
     Indication: ANALGESIA
     Dosage: 60 MG, UNK
     Route: 042
     Dates: start: 20070522, end: 20070525
  3. MIDAZOLAM HCL [Concomitant]
     Indication: SEDATION
     Dosage: 5 MG, UNK
     Route: 042
     Dates: start: 20070522, end: 20070525
  4. DOPAMINE HCL [Concomitant]
     Indication: POLYURIA
     Dosage: 2 A?G/KG/MIN
     Route: 042
     Dates: start: 20070522, end: 20070525
  5. INSULIN [Concomitant]
     Indication: HYPERGLYCAEMIA
     Dosage: VARIABLE
     Route: 042
     Dates: start: 20070523, end: 20070525
  6. ACTOCORTIN                         /00028603/ [Concomitant]
     Indication: BRONCHOSPASM
     Dosage: 150 MG, QD
     Route: 042
     Dates: start: 20070524, end: 20070524
  7. PANTOPRAZOL [Concomitant]
     Indication: PROPHYLAXIS AGAINST GASTROINTESTINAL ULCER
     Dosage: 40 MG, QD
     Route: 042
     Dates: start: 20070522, end: 20070522
  8. CEFAZOLIN [Concomitant]
     Indication: PROPHYLAXIS
     Dosage: 2 G, QD
     Route: 042
     Dates: start: 20070523, end: 20070525
  9. FUROSEMID                          /00032601/ [Concomitant]
     Indication: DIURETIC THERAPY
     Dosage: 3 AMP, UNK
     Route: 042
     Dates: start: 20070522, end: 20070525
  10. HEPARIN [Concomitant]

REACTIONS (2)
  - MULTI-ORGAN FAILURE [None]
  - PERIPHERAL ISCHAEMIA [None]
